FAERS Safety Report 4711034-1 (Version None)
Quarter: 2005Q3

REPORT INFORMATION
  Report Type: 
  Country: None (occurrence: None)
  Receive Date: 20050707
  Receipt Date: 20050621
  Transmission Date: 20060218
  Serious: No
  Sender: FDA-Public Use
  Company Number: 11674

PATIENT

DRUGS (6)
  1. CISPLATIN [Suspect]
     Indication: NON-SMALL CELL LUNG CANCER
     Dosage: 5 MG/M2 OTH PO
     Route: 048
  2. PACLITAXEL [Suspect]
     Indication: NON-SMALL CELL LUNG CANCER
     Dosage: 200 MG/M2 OTH/45 MG/M2 WEEKLY
  3. CARBOPLATIN [Suspect]
     Indication: NON-SMALL CELL LUNG CANCER
  4. DEXAMETHASONE [Concomitant]
  5. ORPHENADRINE [Concomitant]
  6. RANITIDINE [Concomitant]

REACTIONS (2)
  - FEBRILE NEUTROPENIA [None]
  - LUNG INFECTION [None]
